FAERS Safety Report 24836480 (Version 1)
Quarter: 2025Q1

REPORT INFORMATION
  Report Type: Spontaneous
  Country: US (occurrence: US)
  Receive Date: 20250113
  Receipt Date: 20250113
  Transmission Date: 20250408
  Serious: No
  Sender: ROCHE
  Company Number: US-ROCHE-10000173393

PATIENT
  Age: 70 Year
  Sex: Male
  Weight: 92 kg

DRUGS (8)
  1. XOLAIR [Suspect]
     Active Substance: OMALIZUMAB
     Indication: Asthma
     Dosage: ONCE A MONTH OR EVERY 30 DAYS
     Route: 058
     Dates: start: 20211027
  2. THEOPHYLLINE [Concomitant]
     Active Substance: THEOPHYLLINE
     Route: 048
  3. HUMALOG [Concomitant]
     Active Substance: INSULIN LISPRO
  4. OZEMPIC [Concomitant]
     Active Substance: SEMAGLUTIDE
     Route: 058
  5. SINGULAIR [Concomitant]
     Active Substance: MONTELUKAST SODIUM
     Route: 048
  6. LIPITOR [Concomitant]
     Active Substance: ATORVASTATIN CALCIUM
     Route: 048
  7. AMLODIPINE [Concomitant]
     Active Substance: AMLODIPINE BESYLATE
     Route: 048
  8. XIGDUO XR [Concomitant]
     Active Substance: DAPAGLIFLOZIN PROPANEDIOL\METFORMIN HYDROCHLORIDE
     Route: 048

REACTIONS (3)
  - Product dose omission issue [Not Recovered/Not Resolved]
  - Syringe issue [Unknown]
  - No adverse event [Unknown]

NARRATIVE: CASE EVENT DATE: 20250102
